FAERS Safety Report 8582435-9 (Version None)
Quarter: 2012Q3

REPORT INFORMATION
  Report Type: 
  Country: None (occurrence: None)
  Receive Date: 20120809
  Receipt Date: 20120802
  Transmission Date: 20120928
  Serious: Yes (Other)
  Sender: FDA-Public Use
  Company Number: FR-VIIV HEALTHCARE LIMITED-B0821627A

PATIENT
  Sex: Male
  Weight: 65.5 kg

DRUGS (3)
  1. MARAVIROC [Suspect]
     Indication: HIV INFECTION
     Dosage: 300MG TWICE PER DAY
     Route: 065
     Dates: start: 20120412, end: 20120801
  2. METFORMIN HYDROCHLORIDE [Concomitant]
     Dosage: 1000MG TWICE PER DAY
     Route: 065
     Dates: start: 20111125, end: 20120801
  3. RALTEGRAVIR [Suspect]
     Indication: HIV INFECTION
     Dosage: 400MG TWICE PER DAY
     Route: 065
     Dates: start: 20120412, end: 20120801

REACTIONS (1)
  - CELL DEATH [None]
